FAERS Safety Report 16632613 (Version 1)
Quarter: 2019Q3

REPORT INFORMATION
  Report Type: Spontaneous
  Country: US (occurrence: US)
  Receive Date: 20190725
  Receipt Date: 20190725
  Transmission Date: 20191004
  Serious: No
  Sender: FDA-Public Use
  Company Number: US-ABBVIE-19S-163-2666648-00

PATIENT
  Age: 60 Year
  Sex: Female

DRUGS (4)
  1. SYNTHROID [Suspect]
     Active Substance: LEVOTHYROXINE SODIUM
     Indication: PRODUCT USED FOR UNKNOWN INDICATION
     Route: 048
     Dates: start: 201701, end: 201708
  2. LEVOXYL [Suspect]
     Active Substance: LEVOTHYROXINE SODIUM
     Dosage: 50
     Route: 065
     Dates: start: 201708, end: 201712
  3. LEVOXYL [Suspect]
     Active Substance: LEVOTHYROXINE SODIUM
     Indication: HYPOTHYROIDISM
     Route: 065
     Dates: start: 1986, end: 201701
  4. LEVOXYL [Suspect]
     Active Substance: LEVOTHYROXINE SODIUM
     Dosage: 75
     Route: 065

REACTIONS (15)
  - Headache [Recovered/Resolved]
  - Arthralgia [Recovered/Resolved]
  - Arthralgia [Unknown]
  - Cardiac flutter [Unknown]
  - Drug ineffective [Unknown]
  - Insomnia [Recovered/Resolved]
  - Insomnia [Unknown]
  - Unevaluable event [Unknown]
  - Feeling abnormal [Unknown]
  - Headache [Unknown]
  - Somnolence [Recovered/Resolved]
  - Feeling cold [Recovered/Resolved]
  - Hot flush [Recovered/Resolved]
  - Product quality issue [Unknown]
  - Dizziness [Unknown]

NARRATIVE: CASE EVENT DATE: 201701
